FAERS Safety Report 25998124 (Version 2)
Quarter: 2025Q4

REPORT INFORMATION
  Report Type: Report from Study
  Country: US (occurrence: US)
  Receive Date: 20251105
  Receipt Date: 20251216
  Transmission Date: 20260118
  Serious: Yes (Other)
  Sender: ALEXION PHARMACEUTICALS
  Company Number: US-AstraZeneca-CH-00983581A

PATIENT
  Sex: Female

DRUGS (3)
  1. FASENRA [Suspect]
     Active Substance: BENRALIZUMAB
     Route: 065
  2. FASENRA [Suspect]
     Active Substance: BENRALIZUMAB
  3. SYMBICORT [Suspect]
     Active Substance: BUDESONIDE\FORMOTEROL FUMARATE DIHYDRATE
     Route: 065

REACTIONS (14)
  - Steroid diabetes [Unknown]
  - Glaucoma [Unknown]
  - Bone disorder [Unknown]
  - Cough [Unknown]
  - Oropharyngeal discomfort [Unknown]
  - Nasal congestion [Unknown]
  - COVID-19 [Unknown]
  - Cataract [Unknown]
  - Dysphonia [Unknown]
  - Bronchitis [Unknown]
  - Rhinitis allergic [Unknown]
  - Asthma [Unknown]
  - Eosinophil count increased [Unknown]
  - Pulmonary function test decreased [Unknown]
